FAERS Safety Report 7814090-7 (Version None)
Quarter: 2011Q4

REPORT INFORMATION
  Report Type: 
  Country: None (occurrence: None)
  Receive Date: 20111014
  Receipt Date: 20111004
  Transmission Date: 20120403
  Serious: Yes (Other)
  Sender: FDA-Public Use
  Company Number: BR-JNJFOC-20111003266

PATIENT
  Age: 12 Year
  Sex: Female
  Weight: 61 kg

DRUGS (2)
  1. KETOCONAZOLE [Suspect]
     Route: 065
  2. KETOCONAZOLE [Suspect]
     Indication: PITUITARY-DEPENDENT CUSHING'S SYNDROME
     Route: 065

REACTIONS (1)
  - BENIGN INTRACRANIAL HYPERTENSION [None]
